FAERS Safety Report 6405119-1 (Version None)
Quarter: 2009Q4

REPORT INFORMATION
  Report Type: 
  Country: None (occurrence: None)
  Receive Date: 20091019
  Receipt Date: 20091009
  Transmission Date: 20100525
  Serious: Yes (Other)
  Sender: FDA-Public Use
  Company Number: US-JNJFOC-20090908635

PATIENT
  Sex: Male

DRUGS (1)
  1. CHILDREN'S TYLENOL PLUS COUGH + SORE THROAT CHERRY [Suspect]
     Indication: DRUG USE FOR UNKNOWN INDICATION
     Dosage: DOSE UNSPECIFIED; TOOK PRODUCT BEFORE THE RECALL (DATE UNSPECIFIED).
     Route: 048

REACTIONS (3)
  - GASTROENTERITIS SALMONELLA [None]
  - RESPIRATORY DISORDER [None]
  - TRANSMISSION OF AN INFECTIOUS AGENT VIA A MEDICINAL PRODUCT [None]
